FAERS Safety Report 21646803 (Version 1)
Quarter: 2022Q4

REPORT INFORMATION
  Report Type: Spontaneous
  Country: ES (occurrence: ES)
  Receive Date: 20221127
  Receipt Date: 20221127
  Transmission Date: 20230113
  Serious: Yes (Other)
  Sender: FDA-Public Use
  Company Number: None

PATIENT
  Age: 34 Year
  Sex: Female
  Weight: 70 kg

DRUGS (2)
  1. CODEINE PHOSPHATE [Suspect]
     Active Substance: CODEINE PHOSPHATE
     Indication: Viral infection
     Dosage: CODEISAN 28.7 MG, 20 TABLETS, UNIT DOSE: 28.7 MG, FREQUENCY TIME : 1 DAY, DURATION : 2 DAYS
     Dates: start: 20221018, end: 20221019
  2. AZITHROMYCIN [Suspect]
     Active Substance: AZITHROMYCIN
     Indication: Viral infection
     Dosage: STRENGTH : 500 MG, UNIT DOSE: 500 MG , FREQUENCY TIME : 1 DAY, DURATION : 2 DAYS
     Dates: start: 20221018, end: 20221019

REACTIONS (7)
  - Pruritus [Recovered/Resolved]
  - Hyperhidrosis [Recovered/Resolved]
  - Erythema [Recovered/Resolved]
  - Nausea [Recovered/Resolved]
  - Dizziness [Recovered/Resolved]
  - Hot flush [Recovered/Resolved]
  - Palatal oedema [Recovered/Resolved]

NARRATIVE: CASE EVENT DATE: 20221019
